FAERS Safety Report 5380971-X (Version None)
Quarter: 2007Q3

REPORT INFORMATION
  Report Type: 
  Country: None (occurrence: None)
  Receive Date: 20070706
  Receipt Date: 20070328
  Transmission Date: 20080115
  Serious: Yes (Disabling)
  Sender: FDA-Public Use
  Company Number: GB-ASTRAZENECA-2007GB00680

PATIENT
  Age: 83 Year
  Sex: Female

DRUGS (3)
  1. OMEPRAZOLE [Suspect]
     Indication: HIATUS HERNIA
     Route: 048
     Dates: start: 20050616
  2. EXEMESTANE [Interacting]
     Indication: BREAST CANCER
     Route: 048
     Dates: end: 20060614
  3. EXEMESTANE [Interacting]
     Route: 048

REACTIONS (3)
  - CHEST DISCOMFORT [None]
  - DRUG INTERACTION [None]
  - VOMITING [None]
